FAERS Safety Report 10045369 (Version 2)
Quarter: 2014Q2

REPORT INFORMATION
  Report Type: Spontaneous
  Country: US (occurrence: US)
  Receive Date: 20140328
  Receipt Date: 20140523
  Transmission Date: 20141212
  Serious: Yes (Other)
  Sender: FDA-Public Use
  Company Number: US-PFIZER INC-2014088541

PATIENT
  Age: 50 Year
  Sex: Female

DRUGS (7)
  1. CELEBREX [Suspect]
     Indication: OSTEOARTHRITIS
     Dosage: 200 MG, DAILY WITH FOOD
     Route: 048
     Dates: start: 20120220, end: 20130408
  2. ADVIL [Concomitant]
     Dosage: UNK, INTERMITTENTLY
     Dates: end: 20130529
  3. PROTONIX [Concomitant]
     Dosage: UNK
  4. RISPERDAL [Concomitant]
     Dosage: UNK
  5. EFFEXOR [Concomitant]
     Dosage: UNK
  6. LIPITOR [Concomitant]
     Dosage: UNK
  7. ESTRADIOL [Concomitant]
     Dosage: UNK

REACTIONS (3)
  - Gastric haemorrhage [Recovered/Resolved]
  - Gastritis [Recovered/Resolved]
  - Iron deficiency anaemia [Recovered/Resolved]
